FAERS Safety Report 6242203-X (Version None)
Quarter: 2009Q2

REPORT INFORMATION
  Report Type: 
  Country: None (occurrence: None)
  Receive Date: 20090622
  Receipt Date: 20090622
  Transmission Date: 20091009
  Serious: No
  Sender: FDA-Public Use
  Company Number: None

PATIENT
  Sex: Female
  Weight: 24.9478 kg

DRUGS (4)
  1. RID [Suspect]
     Indication: LICE INFESTATION
     Dosage: ACCORDING TO LABEL. ABOUT HALF THE BOTTLE. OCCURRED ON FIRST AND ONLY USE.
     Dates: start: 20090509, end: 20090509
  2. DE-BUG LICE OIL [Concomitant]
  3. FLAT IRON [Concomitant]
  4. OVIDE [Concomitant]

REACTIONS (2)
  - CYANOSIS [None]
  - LIP SWELLING [None]
